FAERS Safety Report 4664343-9 (Version None)
Quarter: 2005Q2

REPORT INFORMATION
  Report Type: 
  Country: None (occurrence: None)
  Receive Date: 20050518
  Receipt Date: 20041110
  Transmission Date: 20051028
  Serious: No
  Sender: FDA-Public Use
  Company Number: 2004AP05741

PATIENT
  Age: 16047 Day
  Sex: Female
  Weight: 80 kg

DRUGS (2)
  1. OMEPRAZOLE [Suspect]
     Indication: ABDOMINAL PAIN UPPER
     Route: 048
     Dates: start: 20030328, end: 20030330
  2. OMEPRAZOLE [Suspect]
     Indication: TENDERNESS
     Route: 048
     Dates: start: 20030328, end: 20030330

REACTIONS (4)
  - ASTHENIA [None]
  - INAPPROPRIATE ANTIDIURETIC HORMONE SECRETION [None]
  - MUSCLE TWITCHING [None]
  - NAUSEA [None]
